FAERS Safety Report 4401623-6 (Version None)
Quarter: 2004Q3

REPORT INFORMATION
  Report Type: 
  Country: None (occurrence: None)
  Receive Date: 20040719
  Receipt Date: 20040309
  Transmission Date: 20050211
  Serious: Yes (Hospitalization)
  Sender: FDA-Public Use
  Company Number: US-ROCHE-361082

PATIENT
  Age: 77 Year
  Sex: Male
  Weight: 81.4 kg

DRUGS (12)
  1. CAPECITABINE [Suspect]
     Dosage: 1500MG ADMINISTERED BID AND 150MG ADMINISTERED OD. 3150MG ADMINSITERED DAILY 5 DAYS A WEEK, MONDAY +
     Route: 048
     Dates: start: 20040127, end: 20040302
  2. CAPECITABINE [Suspect]
     Dosage: 1500MG ADMINISTERED BID AND 150MG ADMINISTERED OD. 3150MG ADMINSITERED DAILY 5 DAYS A WEEK, MONDAY +
     Route: 048
     Dates: start: 20040614, end: 20040627
  3. OXYCODONE AND ACETAMINOPHEN [Concomitant]
     Dosage: 2 TABLETS TAKEN EVERY 4 HOURS AS REQUIRED
  4. BACTRIM [Concomitant]
     Dates: start: 20040227, end: 20040303
  5. CITALOPRAM [Concomitant]
  6. METOPROLOL [Concomitant]
     Dates: end: 20040303
  7. SENNOSIDE [Concomitant]
  8. ASPIRIN [Concomitant]
  9. LISINOPRIL [Concomitant]
     Dates: end: 20040303
  10. DOCUSATE [Concomitant]
  11. MEGESTROL [Concomitant]
     Dosage: 800MG/20ML DAILY
  12. TRAZODONE HCL [Concomitant]
     Dosage: AT BEDTIME

REACTIONS (20)
  - ANAL DISCOMFORT [None]
  - ANOREXIA [None]
  - ARRHYTHMIA [None]
  - BENIGN PROSTATIC HYPERPLASIA [None]
  - BURNING SENSATION [None]
  - DEHYDRATION [None]
  - DYSGEUSIA [None]
  - ERYTHEMA [None]
  - HAEMATOCRIT DECREASED [None]
  - HAEMOGLOBIN DECREASED [None]
  - HYPOTENSION [None]
  - INDURATION [None]
  - MARKEDLY REDUCED DIETARY INTAKE [None]
  - OEDEMA [None]
  - PROCTALGIA [None]
  - REFUSAL OF TREATMENT BY PATIENT [None]
  - RENAL FAILURE ACUTE [None]
  - STREPTOCOCCAL INFECTION [None]
  - URINARY RETENTION [None]
  - WEIGHT DECREASED [None]
